FAERS Safety Report 25689580 (Version 1)
Quarter: 2025Q3

REPORT INFORMATION
  Report Type: Other
  Country: AR (occurrence: AR)
  Receive Date: 20250818
  Receipt Date: 20250818
  Transmission Date: 20251021
  Serious: Yes (Other)
  Sender: ALVOGEN
  Company Number: AR-ALVOGEN-2025098535

PATIENT
  Age: 5 Year
  Sex: Male

DRUGS (1)
  1. VORICONAZOLE [Suspect]
     Active Substance: VORICONAZOLE
     Indication: Aspergillus infection
     Dates: start: 202106, end: 20210630

REACTIONS (4)
  - Neurotoxicity [Recovered/Resolved]
  - Idiosyncratic drug reaction [Recovered/Resolved]
  - Peripheral motor neuropathy [Recovered/Resolved]
  - Peripheral sensory neuropathy [Recovered/Resolved]

NARRATIVE: CASE EVENT DATE: 20210601
